FAERS Safety Report 4588581-9 (Version None)
Quarter: 2005Q1

REPORT INFORMATION
  Report Type: 
  Country: None (occurrence: None)
  Receive Date: 20050214
  Receipt Date: 20050214
  Transmission Date: 20050727
  Serious: Yes (Other)
  Sender: FDA-Public Use
  Company Number: None

PATIENT
  Age: 50 Year
  Sex: Female
  Weight: 56.6996 kg

DRUGS (2)
  1. ZICAM NO-DRIP NASAL GEL    ZINCUM GLUCONIUM    ZICAM LLC [Suspect]
     Dosage: 1 SPRAY   Q4 HRS   NASAL
     Route: 045
     Dates: start: 20050212, end: 20050212
  2. ALLEGRA [Concomitant]

REACTIONS (2)
  - INSOMNIA [None]
  - NASAL DISCOMFORT [None]
